FAERS Safety Report 5388653-5 (Version None)
Quarter: 2007Q3

REPORT INFORMATION
  Report Type: 
  Country: None (occurrence: None)
  Receive Date: 20070716
  Receipt Date: 20041015
  Transmission Date: 20080115
  Serious: Yes (Other)
  Sender: FDA-Public Use
  Company Number: DE-BOEHRINGER INGELHEIM PHARMACEUTICALS, INC.-2004-DE-05564BY

PATIENT
  Sex: Female

DRUGS (5)
  1. KINZALMONO [Suspect]
     Indication: HYPERTENSION
     Route: 048
     Dates: start: 20040227, end: 20040826
  2. EUTHYROX [Concomitant]
     Route: 048
     Dates: start: 19940402
  3. RAMIPRIL [Concomitant]
     Route: 048
  4. NORVASC [Concomitant]
     Route: 048
  5. CLONISTADA [Concomitant]
     Route: 048

REACTIONS (2)
  - DRUG INEFFECTIVE [None]
  - RENAL FAILURE [None]
